FAERS Safety Report 5235632-4 (Version None)
Quarter: 2007Q1

REPORT INFORMATION
  Report Type: 
  Country: None (occurrence: None)
  Receive Date: 20070212
  Receipt Date: 20070209
  Transmission Date: 20070707
  Serious: Yes (Death)
  Sender: FDA-Public Use
  Company Number: US-GLAXOSMITHKLINE-A0539356A

PATIENT
  Age: 54 Year
  Sex: Male

DRUGS (3)
  1. PAXIL [Suspect]
     Indication: DEPRESSION
     Dosage: 30MG PER DAY
     Route: 048
     Dates: start: 20020116, end: 20020214
  2. PREVACID [Concomitant]
  3. AMBIEN [Concomitant]

REACTIONS (10)
  - ADVERSE EVENT [None]
  - ANOREXIA [None]
  - ANXIETY [None]
  - COLITIS [None]
  - COMPLETED SUICIDE [None]
  - CRYING [None]
  - DEPRESSION [None]
  - INSOMNIA [None]
  - NERVOUSNESS [None]
  - PAIN [None]
